FAERS Safety Report 16757315 (Version 1)
Quarter: 2019Q3

REPORT INFORMATION
  Report Type: Spontaneous
  Country: ES (occurrence: ES)
  Receive Date: 20190829
  Receipt Date: 20190829
  Transmission Date: 20191005
  Serious: Yes (Life-Threatening)
  Sender: FDA-Public Use
  Company Number: ES-TEVA-2019-ES-1099712

PATIENT
  Age: 57 Year
  Sex: Female

DRUGS (5)
  1. FENTANILO 50 MICROGRAMOS/H PARCHE TRANSDERMICO [Concomitant]
     Indication: PRODUCT USED FOR UNKNOWN INDICATION
     Dosage: 1 DOSAGE FORMS
     Dates: start: 20190511
  2. METFORMINA (1359A) [Concomitant]
     Active Substance: METFORMIN HYDROCHLORIDE
     Indication: DIABETES MELLITUS
     Dosage: 850MG
     Route: 048
     Dates: start: 20181004
  3. ETOPOSIDO (518A) [Suspect]
     Active Substance: ETOPOSIDE
     Indication: LUNG NEOPLASM MALIGNANT
     Dosage: 231.6MG
     Route: 042
     Dates: start: 20190529
  4. CISPLATINO (644A) [Suspect]
     Active Substance: CISPLATIN
     Indication: LUNG NEOPLASM MALIGNANT
     Dosage: 154.4MG
     Route: 042
     Dates: start: 20190529
  5. MIRTAZAPINA 30 MG COMPRIMIDO [Concomitant]
     Indication: PRODUCT USED FOR UNKNOWN INDICATION
     Dosage: 30MG
     Route: 048
     Dates: start: 20190510

REACTIONS (3)
  - Acute coronary syndrome [Recovering/Resolving]
  - Dyspnoea [Recovering/Resolving]
  - Chest pain [Recovering/Resolving]

NARRATIVE: CASE EVENT DATE: 20190806
